FAERS Safety Report 8850926 (Version 1)
Quarter: 2012Q4

REPORT INFORMATION
  Report Type: 
  Country: GB (occurrence: RO)
  Receive Date: 20121019
  Receipt Date: 20121019
  Transmission Date: 20130627
  Serious: Yes (Hospitalization)
  Sender: FDA-Public Use
  Company Number: RO-009507513-1210ROM002915

PATIENT
  Age: 50 Year
  Sex: Male

DRUGS (3)
  1. BOCEPREVIR [Suspect]
     Indication: HEPATITIS C
     Dosage: 2400 milligrams, qd
     Route: 048
     Dates: start: 20120803, end: 20120924
  2. PEGINTRON [Suspect]
     Indication: HEPATITIS C
     Dosage: 150 Microgram, qw
     Route: 058
     Dates: start: 20120706, end: 20120921
  3. RIBAVIRIN [Suspect]
     Dosage: UNK

REACTIONS (5)
  - Sepsis syndrome [Unknown]
  - Pyrexia [Unknown]
  - Leukopenia [Unknown]
  - Neutropenia [Unknown]
  - Red blood cell sedimentation rate increased [Unknown]
